FAERS Safety Report 6194918-X (Version None)
Quarter: 2009Q2

REPORT INFORMATION
  Report Type: 
  Country: None (occurrence: None)
  Receive Date: 20090515
  Receipt Date: 20090515
  Transmission Date: 20091009
  Serious: No
  Sender: FDA-Public Use
  Company Number: None

PATIENT
  Sex: Female
  Weight: 57.6068 kg

DRUGS (2)
  1. GEODON [Suspect]
     Indication: BIPOLAR DISORDER
     Dosage: 80 MG 2 PO
     Route: 048
     Dates: start: 20050501, end: 20081201
  2. GEODON [Suspect]
     Indication: BIPOLAR DISORDER
     Dosage: 20 MG 1 PO
     Route: 048
     Dates: start: 20081202, end: 20090301

REACTIONS (6)
  - ACNE [None]
  - AMENORRHOEA [None]
  - BLOOD PROLACTIN INCREASED [None]
  - GALACTORRHOEA [None]
  - HAIR GROWTH ABNORMAL [None]
  - INFERTILITY [None]
